FAERS Safety Report 9330695 (Version 2)
Quarter: 2013Q3

REPORT INFORMATION
  Report Type: Spontaneous
  Country: US (occurrence: US)
  Receive Date: 20130605
  Receipt Date: 20130724
  Transmission Date: 20140515
  Serious: No
  Sender: FDA-Public Use
  Company Number: US-009507513-1306USA000388

PATIENT
  Age: 47 Year
  Sex: Female
  Weight: 154.65 kg

DRUGS (5)
  1. NEXPLANON [Suspect]
     Indication: CONTRACEPTION
     Dosage: 1 ROD
     Route: 059
     Dates: start: 20130530, end: 20130530
  2. ZOLOFT [Concomitant]
  3. JANUMET [Concomitant]
     Route: 048
  4. LASIX (FUROSEMIDE SODIUM) [Concomitant]
  5. IMPLANON [Concomitant]
     Dosage: UNK
     Route: 059

REACTIONS (4)
  - Application site discomfort [Unknown]
  - Device expulsion [Recovered/Resolved]
  - Implant site irritation [Unknown]
  - Implant site erythema [Unknown]
